FAERS Safety Report 6845817-9 (Version None)
Quarter: 2010Q3

REPORT INFORMATION
  Report Type: 
  Country: None (occurrence: None)
  Receive Date: 20100715
  Receipt Date: 20070827
  Transmission Date: 20110219
  Serious: No
  Sender: FDA-Public Use
  Company Number: US-PFIZER INC-2007072958

PATIENT
  Sex: Male
  Weight: 90.7 kg

DRUGS (13)
  1. CHANTIX [Suspect]
     Indication: SMOKING CESSATION THERAPY
     Dates: start: 20070813
  2. GLUCOPHAGE [Concomitant]
  3. GLUCOTROL [Concomitant]
  4. ACTOS [Concomitant]
  5. PRINIVIL [Concomitant]
  6. MEVACOR [Concomitant]
  7. PRILOSEC [Concomitant]
  8. LEVOTHROID [Concomitant]
  9. AMITRIPTYLINE HYDROCHLORIDE [Concomitant]
  10. ACETYLSALICYLIC ACID [Concomitant]
  11. IRON [Concomitant]
  12. LOVAZA [Concomitant]
  13. ALBUTEROL [Concomitant]

REACTIONS (1)
  - SOMNOLENCE [None]
